FAERS Safety Report 23752421 (Version 1)
Quarter: 2024Q2

REPORT INFORMATION
  Report Type: Spontaneous
  Country: US (occurrence: US)
  Receive Date: 20240417
  Receipt Date: 20240417
  Transmission Date: 20240716
  Serious: Yes (Other)
  Sender: FDA-Public Use
  Company Number: US-ALCON LABORATORIES-ALC2023US001617

PATIENT
  Sex: Female

DRUGS (4)
  1. LATANOPROST [Suspect]
     Active Substance: LATANOPROST
     Indication: Product used for unknown indication
     Dosage: UNK, QHS
     Route: 047
  2. SIMBRINZA [Suspect]
     Active Substance: BRIMONIDINE TARTRATE\BRINZOLAMIDE
     Dosage: UNK UNK, BID (IN HER RIGHT EYE MORNING AND EVENING)
     Route: 047
  3. SIMBRINZA [Suspect]
     Active Substance: BRIMONIDINE TARTRATE\BRINZOLAMIDE
     Indication: Product used for unknown indication
     Dosage: UNK UNK, BID (IN HER RIGHT EYE MORNING AND EVENING)
     Route: 047
  4. TIMOLOL MALEATE [Suspect]
     Active Substance: TIMOLOL MALEATE
     Indication: Product used for unknown indication
     Dosage: UNK, BID
     Route: 047

REACTIONS (2)
  - Blindness transient [Unknown]
  - Vision blurred [Not Recovered/Not Resolved]
